FAERS Safety Report 6385405-4 (Version None)
Quarter: 2009Q4

REPORT INFORMATION
  Report Type: 
  Country: None (occurrence: None)
  Receive Date: 20091002
  Receipt Date: 20080825
  Transmission Date: 20100525
  Serious: No
  Sender: FDA-Public Use
  Company Number: US-ASTRAZENECA-2008UW17368

PATIENT
  Age: 82 Year
  Sex: Female
  Weight: 81.6 kg

DRUGS (4)
  1. ARIMIDEX [Suspect]
     Indication: BREAST CANCER FEMALE
     Dosage: 1 MG
     Route: 048
     Dates: start: 20060201
  2. CELEBREX [Concomitant]
  3. METFORMIN [Concomitant]
  4. OMEPRAZOLE [Concomitant]
     Route: 048

REACTIONS (4)
  - ALOPECIA [None]
  - BLOOD PRESSURE INCREASED [None]
  - DIABETES MELLITUS [None]
  - HOT FLUSH [None]
